FAERS Safety Report 15107007 (Version 2)
Quarter: 2018Q3

REPORT INFORMATION
  Report Type: Report from Study
  Country: None (occurrence: ES)
  Receive Date: 20180704
  Receipt Date: 20180722
  Transmission Date: 20181010
  Serious: Yes (Death, Other)
  Sender: FDA-Public Use
  Company Number: ES-ABBVIE-18S-144-2408143-00

PATIENT
  Age: 83 Year
  Sex: Male

DRUGS (1)
  1. DUODOPA [Suspect]
     Active Substance: CARBIDOPA\LEVODOPA
     Indication: PARKINSON^S DISEASE
     Route: 050
     Dates: start: 20141017, end: 20180630

REACTIONS (2)
  - Epilepsy [Fatal]
  - Pneumonia [Fatal]

NARRATIVE: CASE EVENT DATE: 201806
